FAERS Safety Report 6954907-1 (Version None)
Quarter: 2010Q3

REPORT INFORMATION
  Report Type: 
  Country: None (occurrence: None)
  Receive Date: 20100830
  Receipt Date: 20100813
  Transmission Date: 20110219
  Serious: No
  Sender: FDA-Public Use
  Company Number: US-B.I. PHARMACEUTICALS,INC./RIDGEFIELD-2010-BP-09292BP

PATIENT
  Sex: Male
  Weight: 117.93 kg

DRUGS (4)
  1. SPIRIVA [Suspect]
     Indication: EMPHYSEMA
     Dosage: 18 MCG
     Route: 055
     Dates: start: 20100101
  2. SPIRIVA [Suspect]
     Route: 048
     Dates: start: 20100809, end: 20100809
  3. LIPITOR [Concomitant]
     Indication: BLOOD CHOLESTEROL INCREASED
     Dates: start: 20090101
  4. MEDICATION NOT FURTHER SPECIFIED [Concomitant]
     Indication: HYPERTENSION

REACTIONS (3)
  - ABDOMINAL PAIN UPPER [None]
  - CONSTIPATION [None]
  - INCORRECT ROUTE OF DRUG ADMINISTRATION [None]
